FAERS Safety Report 7343618-9 (Version None)
Quarter: 2011Q1

REPORT INFORMATION
  Report Type: 
  Country: None (occurrence: None)
  Receive Date: 20110310
  Receipt Date: 20100726
  Transmission Date: 20110831
  Serious: No
  Sender: FDA-Public Use
  Company Number: A0872301A

PATIENT
  Age: 29 Year
  Sex: Female

DRUGS (1)
  1. NICORETTE [Suspect]
     Dates: start: 20100609

REACTIONS (3)
  - NAUSEA [None]
  - VOMITING [None]
  - ABDOMINAL PAIN UPPER [None]
